FAERS Safety Report 6237681-6 (Version None)
Quarter: 2009Q2

REPORT INFORMATION
  Report Type: 
  Country: None (occurrence: None)
  Receive Date: 20090617
  Receipt Date: 20090602
  Transmission Date: 20091009
  Serious: Yes (Death)
  Sender: FDA-Public Use
  Company Number: AE2009-070

PATIENT
  Age: 81 Year
  Sex: Male

DRUGS (11)
  1. FAZACLO ODT [Suspect]
     Dosage: 25 MG DAILY PO
     Route: 048
     Dates: start: 20080327, end: 20090409
  2. ACETAMINOPHEN [Concomitant]
  3. ALBUTEROL [Concomitant]
  4. ASPIRIN [Concomitant]
  5. TRANSDERM SCOP PATCH [Concomitant]
  6. IPARTROPIUM SOLUTION [Concomitant]
  7. MEDROXYPROGRESTERONE INJECTION [Concomitant]
  8. MORPHINE SOLUTION [Concomitant]
  9. POTASSIUM CHLORIDE [Concomitant]
  10. PROSOURCE PROTEIN POWDER [Concomitant]
  11. SINGULAIR [Concomitant]

REACTIONS (1)
  - DEATH [None]
